FAERS Safety Report 4997909-7 (Version None)
Quarter: 2006Q2

REPORT INFORMATION
  Report Type: 
  Country: None (occurrence: None)
  Receive Date: 20060510
  Receipt Date: 20060503
  Transmission Date: 20061013
  Serious: Yes (Hospitalization, Other)
  Sender: FDA-Public Use
  Company Number: US-BRISTOL-MYERS SQUIBB COMPANY-13365796

PATIENT
  Age: 56 Year
  Sex: Male
  Weight: 73 kg

DRUGS (18)
  1. ERBITUX [Suspect]
     Indication: COLORECTAL CANCER
     Dosage: FIRST DOSE OF 400 MG/M2=10-JAN-2006/250 MG/M2 IV ON DAY 8 WEEKLY/TOTAL DOSE THIS COURSE = 998 MG.
     Route: 042
     Dates: start: 20060403, end: 20060403
  2. AVASTIN [Suspect]
     Indication: COLORECTAL CANCER
     Dosage: FIRST DOSE ON 10-JAN-2006/TOTAL DOSE ADMINISTERED THIS COURSE = 815 MG.
     Route: 042
     Dates: start: 20060403, end: 20060403
  3. FLUOROURACIL [Suspect]
     Indication: COLORECTAL CANCER
     Dosage: INIT10-JAN-2006/400 MG/M2 IV BOLUS D1/CONTIN. INFUS. 2400 MG/M2OVER46HRS/TOTDOSETHISCOURSE=10070 MG.
     Route: 042
     Dates: start: 20060403, end: 20060403
  4. LEUCOVORIN [Suspect]
     Indication: COLORECTAL CANCER
     Dosage: INITIATED ON 10-JAN-2006/ADMINISTERED OVER 2 HRS ON D1 Q2WEEKS/TOTAL DOSE THIS COURSE = 1596 MG.
     Route: 042
     Dates: start: 20060403, end: 20060403
  5. OXALIPLATIN [Suspect]
     Indication: COLORECTAL CANCER
     Dosage: INITIATED 10-JAN-06/TOTAL DOSE ADMINISTERED THIS COURSE = 302 MG.
     Route: 042
     Dates: start: 20060403, end: 20060403
  6. ENALAPRIL MALEATE [Suspect]
  7. FUROSEMIDE [Suspect]
  8. AUGMENTIN '125' [Suspect]
  9. CLINDAMYCIN [Suspect]
  10. CLOTRIMAZOLE [Suspect]
  11. LANOXICAPS [Suspect]
  12. VANCOMYCIN [Suspect]
  13. COREG [Concomitant]
  14. FLUCONAZOLE [Concomitant]
  15. FOLTX [Concomitant]
  16. KYTRIL [Concomitant]
  17. OMEPRAZOLE [Concomitant]
  18. OXYCODONE [Concomitant]

REACTIONS (10)
  - ANOREXIA [None]
  - BLOOD CREATININE INCREASED [None]
  - DERMATITIS ACNEIFORM [None]
  - DIARRHOEA [None]
  - FATIGUE [None]
  - HYPOMAGNESAEMIA [None]
  - HYPOPHOSPHATAEMIA [None]
  - INFECTION [None]
  - STOMATITIS [None]
  - WHITE BLOOD CELL COUNT DECREASED [None]
